FAERS Safety Report 14186824 (Version 1)
Quarter: 2017Q4

REPORT INFORMATION
  Report Type: Spontaneous
  Country: None (occurrence: US)
  Receive Date: 20171114
  Receipt Date: 20171114
  Transmission Date: 20180321
  Serious: No
  Sender: FDA-Public Use
  Company Number: US-DUCHESNAY INC.-2034013

PATIENT
  Age: 26 Year
  Sex: Female

DRUGS (1)
  1. DICLEGIS [Suspect]
     Active Substance: DOXYLAMINE SUCCINATE\PYRIDOXINE HYDROCHLORIDE
     Indication: VOMITING IN PREGNANCY
     Route: 048
     Dates: start: 20171106, end: 20171108

REACTIONS (2)
  - Nausea [Unknown]
  - Sleep disorder [Unknown]

NARRATIVE: CASE EVENT DATE: 20171106
